FAERS Safety Report 12420918 (Version 3)
Quarter: 2016Q3

REPORT INFORMATION
  Report Type: Spontaneous
  Country: JP (occurrence: JP)
  Receive Date: 20160531
  Receipt Date: 20160802
  Transmission Date: 20161109
  Serious: No
  Sender: FDA-Public Use
  Company Number: JP-EISAI MEDICAL RESEARCH-EC-2015-012623

PATIENT
  Age: 73 Year
  Sex: Female
  Weight: 44 kg

DRUGS (4)
  1. CALCIUM [Concomitant]
     Active Substance: CALCIUM
     Dates: start: 20160322
  2. LENVIMA [Suspect]
     Active Substance: LENVATINIB
     Route: 048
     Dates: start: 20160607
  3. LENVIMA [Suspect]
     Active Substance: LENVATINIB
     Indication: THYROID CANCER
     Route: 048
     Dates: start: 20151124, end: 20160315
  4. CALCIUM [Concomitant]
     Active Substance: CALCIUM
     Dates: end: 20160315

REACTIONS (4)
  - Vomiting [Recovered/Resolved]
  - Blood urine present [Not Recovered/Not Resolved]
  - Proteinuria [Unknown]
  - Hypocalcaemia [Recovered/Resolved]

NARRATIVE: CASE EVENT DATE: 20151130
